FAERS Safety Report 23076944 (Version 1)
Quarter: 2023Q4

REPORT INFORMATION
  Report Type: Report from Study
  Country: US (occurrence: US)
  Receive Date: 20231018
  Receipt Date: 20231018
  Transmission Date: 20240109
  Serious: Yes (Other)
  Sender: FDA-Public Use
  Company Number: US-ABBVIE-5450735

PATIENT
  Sex: Female

DRUGS (1)
  1. RINVOQ [Suspect]
     Active Substance: UPADACITINIB
     Indication: Crohn^s disease
     Route: 048
     Dates: start: 20230612

REACTIONS (5)
  - Anal fistula [Not Recovered/Not Resolved]
  - Impaired healing [Not Recovered/Not Resolved]
  - Proctalgia [Not Recovered/Not Resolved]
  - Rectal haemorrhage [Unknown]
  - Anorectal infection [Unknown]

NARRATIVE: CASE EVENT DATE: 20230101
